FAERS Safety Report 12096368 (Version 5)
Quarter: 2017Q2

REPORT INFORMATION
  Report Type: Report from Study
  Country: DE (occurrence: DE)
  Receive Date: 20160220
  Receipt Date: 20170620
  Transmission Date: 20170829
  Serious: Yes (Hospitalization)
  Sender: FDA-Public Use
  Company Number: DE-ASTRAZENECA-2016SE14260

PATIENT
  Age: 49 Year
  Sex: Male
  Weight: 94 kg

DRUGS (29)
  1. LYRICA [Concomitant]
     Active Substance: PREGABALIN
     Route: 048
     Dates: start: 20160112, end: 20160122
  2. IBUPROFEN. [Concomitant]
     Active Substance: IBUPROFEN
     Dosage: PRN
     Route: 048
     Dates: start: 2015
  3. ZOMETA [Concomitant]
     Active Substance: ZOLEDRONIC ACID
     Dosage: 4.0MG ONCE/SINGLE ADMINISTRATION
     Route: 042
     Dates: start: 20160322, end: 20160322
  4. ZOMETA [Concomitant]
     Active Substance: ZOLEDRONIC ACID
     Dosage: 4.0MG ONCE/SINGLE ADMINISTRATION
     Route: 042
     Dates: start: 20160927, end: 20160927
  5. FENTANYL. [Concomitant]
     Active Substance: FENTANYL
     Route: 003
     Dates: start: 20160325, end: 20160524
  6. FENTANYL. [Concomitant]
     Active Substance: FENTANYL
     Route: 003
     Dates: start: 20160524, end: 20170313
  7. FENTANYL. [Concomitant]
     Active Substance: FENTANYL
     Route: 003
     Dates: start: 20170530
  8. LYRICA [Concomitant]
     Active Substance: PREGABALIN
     Route: 048
     Dates: start: 20151228, end: 20160106
  9. NOVALGIN [Concomitant]
     Active Substance: METAMIZOLE SODIUM
     Route: 048
     Dates: start: 20160122
  10. PANTOZOL [Concomitant]
     Active Substance: PANTOPRAZOLE SODIUM
     Dosage: 40.0MG ONCE/SINGLE ADMINISTRATION
     Route: 042
     Dates: start: 20160209, end: 20160209
  11. LYRICA [Concomitant]
     Active Substance: PREGABALIN
     Route: 048
     Dates: start: 20160107, end: 20160111
  12. RANITIDIN [Concomitant]
     Active Substance: RANITIDINE HYDROCHLORIDE
     Indication: PROPHYLAXIS
     Dosage: 50.0MG ONCE/SINGLE ADMINISTRATION
     Route: 042
     Dates: start: 20160212, end: 20160214
  13. ZOMETA [Concomitant]
     Active Substance: ZOLEDRONIC ACID
     Dosage: 4.0MG ONCE/SINGLE ADMINISTRATION
     Route: 042
     Dates: start: 20160108, end: 20160108
  14. FENTANYL. [Concomitant]
     Active Substance: FENTANYL
     Route: 003
     Dates: start: 20170314, end: 20170530
  15. VOMEX A [Concomitant]
     Active Substance: DIMENHYDRINATE
     Dosage: 150.0MG AS REQUIRED
     Route: 048
     Dates: start: 20160122
  16. TAGRISSO [Suspect]
     Active Substance: OSIMERTINIB
     Indication: NON-SMALL CELL LUNG CANCER METASTATIC
     Route: 048
     Dates: start: 20160119, end: 20160208
  17. PANTOZOL [Concomitant]
     Active Substance: PANTOPRAZOLE SODIUM
     Route: 048
     Dates: start: 20151217
  18. PANTOZOL [Concomitant]
     Active Substance: PANTOPRAZOLE SODIUM
     Dosage: 40.0MG ONCE/SINGLE ADMINISTRATION
     Route: 048
     Dates: start: 20160307
  19. FRAGMIN P FORTE [Concomitant]
     Active Substance: DALTEPARIN SODIUM
     Indication: PROPHYLAXIS
     Dosage: 5000 IE QD
     Route: 058
     Dates: start: 20160105
  20. LYRICA [Concomitant]
     Active Substance: PREGABALIN
     Dosage: TID
     Route: 048
     Dates: start: 20160122
  21. RANITIDIN [Concomitant]
     Active Substance: RANITIDINE HYDROCHLORIDE
     Indication: PROPHYLAXIS
     Dosage: 300.0MG ONCE/SINGLE ADMINISTRATION
     Route: 048
     Dates: start: 20160122
  22. ZOMETA [Concomitant]
     Active Substance: ZOLEDRONIC ACID
     Dosage: 4.0MG ONCE/SINGLE ADMINISTRATION
     Route: 042
     Dates: start: 20160202, end: 20160202
  23. FENTANYL. [Concomitant]
     Active Substance: FENTANYL
     Route: 003
     Dates: start: 20160113, end: 20160324
  24. NOVALGIN [Concomitant]
     Active Substance: METAMIZOLE SODIUM
     Route: 048
     Dates: start: 20160106, end: 20160110
  25. ZOMETA [Concomitant]
     Active Substance: ZOLEDRONIC ACID
     Dosage: 4.0MG ONCE/SINGLE ADMINISTRATION
     Route: 042
     Dates: start: 20160517, end: 20160517
  26. TAGRISSO [Suspect]
     Active Substance: OSIMERTINIB
     Indication: NON-SMALL CELL LUNG CANCER METASTATIC
     Route: 048
     Dates: start: 20160212
  27. FRAGMIN P FORTE [Concomitant]
     Active Substance: DALTEPARIN SODIUM
     Indication: PROPHYLAXIS
     Dosage: 5000 IE ONCE
     Route: 058
     Dates: start: 20160209, end: 20160209
  28. FRAGMIN P FORTE [Concomitant]
     Active Substance: DALTEPARIN SODIUM
     Indication: PROPHYLAXIS
     Dosage: 5000 IE ONCE
     Route: 058
     Dates: start: 20160213, end: 20160214
  29. SEVREDOL [Concomitant]
     Active Substance: MORPHINE
     Dosage: 10.0MG AS REQUIRED
     Route: 048
     Dates: start: 20160122

REACTIONS (2)
  - Vomiting [Recovered/Resolved]
  - Gastritis erosive [Recovered/Resolved]

NARRATIVE: CASE EVENT DATE: 20160206
